FAERS Safety Report 7649209-4 (Version None)
Quarter: 2011Q3

REPORT INFORMATION
  Report Type: 
  Country: None (occurrence: None)
  Receive Date: 20110726
  Receipt Date: 20090810
  Transmission Date: 20111222
  Serious: Yes (Disabling)
  Sender: FDA-Public Use
  Company Number: APP200900106

PATIENT
  Age: 15 Year
  Sex: Female

DRUGS (5)
  1. ANCEF [Concomitant]
  2. GENTAMICIN [Concomitant]
  3. SENSORCAINE [Suspect]
     Indication: INFILTRATION ANAESTHESIA
     Dates: start: 20050912
  4. MORPHINE [Concomitant]
  5. SENSORCAINE [Suspect]
     Indication: ARTHRALGIA
     Dosage: 200 ML, WITH EPINEPHRINE 1:200,000 AT 2 ML HOUR, INTRA-ARTICULAR
     Route: 014
     Dates: start: 20050912

REACTIONS (17)
  - ARTHRALGIA [None]
  - JOINT HYPEREXTENSION [None]
  - BONE LESION [None]
  - OSTEOARTHRITIS [None]
  - FALL [None]
  - MUSCLE GRAFT [None]
  - KNEE IMPINGEMENT SYNDROME [None]
  - CHONDROLYSIS [None]
  - LIGAMENT RUPTURE [None]
  - ARTHROFIBROSIS [None]
  - MUSCLE ATROPHY [None]
  - JOINT ADHESION [None]
  - SKELETAL INJURY [None]
  - JOINT STIFFNESS [None]
  - PATELLOFEMORAL PAIN SYNDROME [None]
  - MENISCUS LESION [None]
  - EXOSTOSIS [None]
